FAERS Safety Report 11146282 (Version 4)
Quarter: 2016Q1

REPORT INFORMATION
  Report Type: Spontaneous
  Country: US (occurrence: US)
  Receive Date: 20150528
  Receipt Date: 20160127
  Transmission Date: 20160525
  Serious: No
  Sender: FDA-Public Use
  Company Number: US-PFIZER INC-2015173849

PATIENT
  Age: 69 Year
  Sex: Female
  Weight: 52 kg

DRUGS (5)
  1. SUTENT [Suspect]
     Active Substance: SUNITINIB MALATE
     Dosage: 12.5 MG, ALTERNATE DAY
     Dates: start: 20150411, end: 20160112
  2. SYNTHROID [Concomitant]
     Active Substance: LEVOTHYROXINE SODIUM
     Dosage: 88 ?G, UNK
     Dates: start: 200206
  3. SUTENT [Suspect]
     Active Substance: SUNITINIB MALATE
     Dosage: 12.5 MG, DAILY
     Dates: start: 20150319
  4. SUTENT [Suspect]
     Active Substance: SUNITINIB MALATE
     Indication: MEDULLARY THYROID CANCER
     Dosage: 12.5 MG, DAILY
     Dates: start: 20150411
  5. SUTENT [Suspect]
     Active Substance: SUNITINIB MALATE
     Dosage: CYCLIC: 12.5MG EVERY OTHER DAY AND 25MG EVERY OTHER DAY
     Dates: start: 20150411

REACTIONS (5)
  - Gastric disorder [Not Recovered/Not Resolved]
  - Product use issue [Unknown]
  - Pain in extremity [Unknown]
  - Diarrhoea [Unknown]
  - Hyperkeratosis [Unknown]

NARRATIVE: CASE EVENT DATE: 20150715
